FAERS Safety Report 4686045-5 (Version None)
Quarter: 2005Q2

REPORT INFORMATION
  Report Type: 
  Country: None (occurrence: None)
  Receive Date: 20050609
  Receipt Date: 20050520
  Transmission Date: 20051028
  Serious: Yes (Hospitalization)
  Sender: FDA-Public Use
  Company Number: FR-BRISTOL-MYERS SQUIBB COMPANY-12976437

PATIENT
  Age: 44 Year
  Sex: Male
  Weight: 60 kg

DRUGS (4)
  1. REYATAZ [Suspect]
     Indication: HIV INFECTION
     Route: 048
     Dates: start: 20040818
  2. VIDEX [Suspect]
     Route: 048
     Dates: start: 20020529
  3. NORVIR [Concomitant]
     Dates: start: 19970122, end: 20040817
  4. EPIVIR [Concomitant]
     Dates: start: 19970122, end: 20040817

REACTIONS (3)
  - ABDOMINAL PAIN [None]
  - CHOLECYSTITIS ACUTE [None]
  - PYREXIA [None]
